FAERS Safety Report 5940658-9 (Version None)
Quarter: 2008Q4

REPORT INFORMATION
  Report Type: 
  Country: None (occurrence: None)
  Receive Date: 20081103
  Receipt Date: 20081103
  Transmission Date: 20090506
  Serious: No
  Sender: FDA-Public Use
  Company Number: None

PATIENT
  Age: 71 Year
  Sex: Female
  Weight: 58.0604 kg

DRUGS (3)
  1. ALENDRONATE SODIUM TABLETS USP 70 MG [Suspect]
     Indication: OSTEOPOROSIS
     Dosage: 70MG ONCE WEEKLY MOUTH
     Route: 048
     Dates: start: 20080612, end: 20080904
  2. ALENDRONATE SODIUM TABLETS USP 70 MG [Suspect]
     Indication: OSTEOPOROSIS
     Dosage: 70MG ONCE WEEKLY MOUTH
     Route: 048
     Dates: start: 20080926
  3. ALENDRONATE SODIUM TABLETS USP 70MG [Suspect]

REACTIONS (9)
  - ABDOMINAL DISTENSION [None]
  - ABDOMINAL PAIN UPPER [None]
  - ARTHRALGIA [None]
  - DRY MOUTH [None]
  - DYSPEPSIA [None]
  - FLATULENCE [None]
  - HEADACHE [None]
  - PAIN IN EXTREMITY [None]
  - PRODUCT QUALITY ISSUE [None]
